FAERS Safety Report 9319304 (Version 1)
Quarter: 2013Q2

REPORT INFORMATION
  Report Type: Spontaneous
  Country: US (occurrence: None)
  Receive Date: 20130524
  Receipt Date: 20130524
  Transmission Date: 20140414
  Serious: Yes (Hospitalization, Other)
  Sender: FDA-Public Use
  Company Number: 300150801-AKO-5198

PATIENT
  Age: 62 Year
  Sex: Female
  Weight: 83 kg

DRUGS (17)
  1. INDIGO CARMINE [Suspect]
     Dosage: 0.0L ML (0.08MG)
     Dates: start: 20130412, end: 20130412
  2. ACETAMINOPHEN [Concomitant]
  3. DEXAMETHASONE [Concomitant]
  4. ATORVASTATIN [Concomitant]
  5. FLUOXETINE [Concomitant]
  6. HYDROCHLOROTHIAZIDE [Concomitant]
  7. LISINOPRIL [Concomitant]
  8. MORPHINE [Concomitant]
  9. IV FLUIDS [Concomitant]
  10. OXYCODONE [Concomitant]
  11. SENNA [Concomitant]
  12. BUPROPION [Concomitant]
  13. ESOMEPRAZOLE [Concomitant]
  14. LORAZEPAM [Concomitant]
  15. CEFAZOLIN [Concomitant]
  16. LEVETIRACETAM [Concomitant]
  17. MANNITOL [Concomitant]

REACTIONS (3)
  - Brain abscess [None]
  - Staphylococcal abscess [None]
  - Postoperative abscess [None]
